FAERS Safety Report 6035225-5 (Version None)
Quarter: 2009Q1

REPORT INFORMATION
  Report Type: 
  Country: None (occurrence: None)
  Receive Date: 20090112
  Receipt Date: 20081218
  Transmission Date: 20090719
  Serious: Yes (Death)
  Sender: FDA-Public Use
  Company Number: US-MERCK-0812USA04636

PATIENT
  Age: 45 Year
  Sex: Male

DRUGS (6)
  1. ZOCOR [Suspect]
     Indication: DRUG USE FOR UNKNOWN INDICATION
     Route: 048
  2. AMLODIPINE [Suspect]
     Indication: COMPLETED SUICIDE
     Route: 065
  3. CLONIDINE [Suspect]
     Indication: COMPLETED SUICIDE
     Route: 065
  4. METOPROLOL [Suspect]
     Indication: COMPLETED SUICIDE
     Route: 065
  5. METFORMIN [Suspect]
     Indication: COMPLETED SUICIDE
     Route: 065
  6. ROSIGLITAZONE MALEATE [Suspect]
     Indication: COMPLETED SUICIDE
     Route: 065

REACTIONS (2)
  - COMPLETED SUICIDE [None]
  - DRUG TOXICITY [None]
